FAERS Safety Report 8259923-8 (Version None)
Quarter: 2012Q2

REPORT INFORMATION
  Report Type: 
  Country: None (occurrence: None)
  Receive Date: 20120402
  Receipt Date: 20120329
  Transmission Date: 20120825
  Serious: Yes (Other)
  Sender: FDA-Public Use
  Company Number: ADR-2011-10710

PATIENT
  Sex: Female

DRUGS (4)
  1. MORPHINE [Concomitant]
  2. BACLOFEN [Concomitant]
  3. BUPIVICAINE [Concomitant]
  4. LIORESAL [Suspect]
     Indication: MUSCLE SPASTICITY
     Dosage: MCB, DAILY, INTRAH
     Route: 037

REACTIONS (2)
  - DRUG WITHDRAWAL SYNDROME [None]
  - DEVICE MALFUNCTION [None]
